FAERS Safety Report 4482029-0 (Version None)
Quarter: 2004Q4

REPORT INFORMATION
  Report Type: 
  Country: None (occurrence: None)
  Receive Date: 20041022
  Receipt Date: 20041011
  Transmission Date: 20050328
  Serious: Yes (Death, Hospitalization)
  Sender: FDA-Public Use
  Company Number: FR-BRISTOL-MYERS SQUIBB COMPANY-12731402

PATIENT
  Age: 67 Year
  Sex: Male

DRUGS (9)
  1. AMIKLIN POWDER [Suspect]
     Indication: LUNG DISORDER
     Route: 042
     Dates: start: 20040906, end: 20040907
  2. CORGARD [Suspect]
     Route: 048
     Dates: end: 20040916
  3. CIFLOX [Suspect]
     Indication: LUNG DISORDER
     Route: 048
     Dates: start: 20040907, end: 20040908
  4. ROCEPHIN [Suspect]
     Indication: LUNG DISORDER
     Route: 042
     Dates: start: 20040906, end: 20040907
  5. LASILIX [Suspect]
     Route: 048
     Dates: end: 20040913
  6. TAZOCILLINE [Suspect]
     Indication: LUNG DISORDER
     Route: 042
     Dates: start: 20040907, end: 20040915
  7. DOXIUM [Suspect]
     Route: 048
     Dates: end: 20040906
  8. MOPRAL [Suspect]
     Route: 048
     Dates: end: 20040916
  9. CALCIDIA [Suspect]
     Route: 048
     Dates: end: 20040916

REACTIONS (7)
  - COUGH [None]
  - GENERAL PHYSICAL HEALTH DETERIORATION [None]
  - PLEURISY [None]
  - PNEUMONITIS [None]
  - PYREXIA [None]
  - SALMONELLA SEPSIS [None]
  - THROMBOCYTOPENIA [None]
